FAERS Safety Report 15192140 (Version 1)
Quarter: 2018Q3

REPORT INFORMATION
  Report Type: Spontaneous
  Country: NO (occurrence: NO)
  Receive Date: 20180724
  Receipt Date: 20180724
  Transmission Date: 20181010
  Serious: Yes (Life-Threatening, Hospitalization)
  Sender: FDA-Public Use
  Company Number: NO-EXELIXIS-CABO-18015017

PATIENT
  Age: 67 Year
  Sex: Male

DRUGS (6)
  1. ALBYL?E [Concomitant]
     Active Substance: ASPIRIN\MAGNESIUM OXIDE
     Indication: MYOCARDIAL INFARCTION
     Route: 048
  2. PRALUENT [Concomitant]
     Active Substance: ALIROCUMAB
     Indication: HYPERCHOLESTEROLAEMIA
     Route: 058
     Dates: start: 20180401
  3. METOPROLOL. [Concomitant]
     Active Substance: METOPROLOL
     Route: 048
  4. CABOMETYX [Suspect]
     Active Substance: CABOZANTINIB S-MALATE
     Indication: RENAL CELL CARCINOMA
     Dosage: 60 MG, QD
     Route: 048
     Dates: start: 20180604, end: 20180610
  5. ATACAND [Concomitant]
     Active Substance: CANDESARTAN CILEXETIL
     Route: 048
  6. SOMAC [Concomitant]
     Active Substance: PANTOPRAZOLE SODIUM
     Indication: GASTRIC ULCER
     Route: 048

REACTIONS (4)
  - Hemiparesis [Recovering/Resolving]
  - Aphasia [Recovering/Resolving]
  - Visual field defect [Recovering/Resolving]
  - Basilar artery thrombosis [Recovering/Resolving]

NARRATIVE: CASE EVENT DATE: 201806
